FAERS Safety Report 4712026-9 (Version None)
Quarter: 2005Q3

REPORT INFORMATION
  Report Type: 
  Country: None (occurrence: None)
  Receive Date: 20050711
  Receipt Date: 20050711
  Transmission Date: 20060218
  Serious: No
  Sender: FDA-Public Use
  Company Number: None

PATIENT
  Age: 31 Year
  Sex: Female
  Weight: 60.3284 kg

DRUGS (2)
  1. PAXIL [Suspect]
     Indication: ANXIETY
     Dosage: 20 MG    DAILY   ORAL
     Route: 048
     Dates: start: 20050404, end: 20050510
  2. PAXIL [Suspect]
     Indication: DEPRESSION
     Dosage: 20 MG    DAILY   ORAL
     Route: 048
     Dates: start: 20050404, end: 20050510

REACTIONS (2)
  - ALOPECIA [None]
  - DRUG WITHDRAWAL SYNDROME [None]
